FAERS Safety Report 8469568-2 (Version None)
Quarter: 2012Q2

REPORT INFORMATION
  Report Type: 
  Country: None (occurrence: None)
  Receive Date: 20120323
  Receipt Date: 20111111
  Transmission Date: 20120825
  Serious: Yes (Hospitalization, Other)
  Sender: FDA-Public Use
  Company Number: 163-21880-11081918

PATIENT
  Age: 64 Year
  Sex: Male

DRUGS (20)
  1. POLYETHYLENE GLYCOL [Concomitant]
  2. LASIX [Concomitant]
  3. PERCOCET [Concomitant]
  4. POTASSIUM ACETATE [Concomitant]
  5. ALLOPURINOL [Concomitant]
  6. OMEPRAZOLE [Concomitant]
  7. MILK OF MAGNESIA TAB [Concomitant]
  8. MORPHINE SULFATE [Concomitant]
  9. PROCHLORPERAZINE [Concomitant]
  10. OXYGEN [Concomitant]
  11. AMBIEN [Concomitant]
  12. MINOCYCLINE HCL [Concomitant]
  13. AMLODIPINE [Concomitant]
  14. PROMETHAZINE [Concomitant]
  15. BACLOFEN [Concomitant]
  16. REVLIMID [Suspect]
     Indication: MULTIPLE MYELOMA
     Dosage: 25 MG, DAILY FOR 21 DAYS 7 DAYS OFF, PO
     Route: 048
     Dates: start: 20110729
  17. VELCADE [Concomitant]
  18. PROPRANOLOL [Concomitant]
  19. ZYRTEC [Concomitant]
  20. BENADRYL [Concomitant]

REACTIONS (2)
  - DEEP VEIN THROMBOSIS [None]
  - PULMONARY EMBOLISM [None]
